FAERS Safety Report 25284292 (Version 1)
Quarter: 2025Q2

REPORT INFORMATION
  Report Type: Spontaneous
  Country: CN (occurrence: CN)
  Receive Date: 20250508
  Receipt Date: 20250508
  Transmission Date: 20250717
  Serious: Yes (Death, Life-Threatening, Other)
  Sender: SANOFI AVENTIS
  Company Number: CN-DialogSolutions-SAAVPROD-PI765520-C1

PATIENT
  Age: 8 Year
  Sex: Male

DRUGS (8)
  1. ANTI-THYMOCYTE GLOBULIN (RABBIT) NOS [Suspect]
     Active Substance: LAPINE T-LYMPHOCYTE IMMUNE GLOBULIN
     Indication: Thalassaemia beta
     Dates: start: 2023, end: 2023
  2. FLUDARABINE PHOSPHATE [Suspect]
     Active Substance: FLUDARABINE PHOSPHATE
     Indication: Thalassaemia beta
     Dates: start: 2023, end: 2023
  3. CYCLOPHOSPHAMIDE [Suspect]
     Active Substance: CYCLOPHOSPHAMIDE
     Indication: Thalassaemia beta
     Dates: start: 2023
  4. CYCLOPHOSPHAMIDE [Suspect]
     Active Substance: CYCLOPHOSPHAMIDE
     Indication: Prophylaxis against graft versus host disease
  5. BUSULFAN [Suspect]
     Active Substance: BUSULFAN
     Indication: Thalassaemia beta
     Dates: start: 2023, end: 2023
  6. THIOTEPA [Suspect]
     Active Substance: THIOTEPA
     Indication: Thalassaemia beta
     Dates: start: 2023, end: 2023
  7. TACROLIMUS [Suspect]
     Active Substance: TACROLIMUS
     Indication: Prophylaxis against graft versus host disease
     Dates: start: 2023
  8. MYCOPHENOLATE MOFETIL [Suspect]
     Active Substance: MYCOPHENOLATE MOFETIL
     Indication: Prophylaxis against graft versus host disease
     Dates: start: 2023

REACTIONS (16)
  - Mucormycosis [Fatal]
  - Vascular pseudoaneurysm ruptured [Fatal]
  - Aortic pseudoaneurysm [Fatal]
  - Pyrexia [Fatal]
  - Cough [Fatal]
  - Abdominal pain upper [Fatal]
  - Musculoskeletal pain [Fatal]
  - Back pain [Fatal]
  - Pleural effusion [Fatal]
  - Atelectasis [Fatal]
  - Fibrinous bronchitis [Fatal]
  - Chest pain [Fatal]
  - Human herpesvirus 6 infection [Unknown]
  - Human polyomavirus infection [Unknown]
  - Fungal infection [Unknown]
  - Off label use [Unknown]

NARRATIVE: CASE EVENT DATE: 20230101
